FAERS Safety Report 7876957-3 (Version None)
Quarter: 2011Q4

REPORT INFORMATION
  Report Type: 
  Country: None (occurrence: None)
  Receive Date: 20111031
  Receipt Date: 20110804
  Transmission Date: 20120403
  Serious: Yes (Hospitalization)
  Sender: FDA-Public Use
  Company Number: PHHY2009SI68731

PATIENT
  Sex: Female
  Weight: 19 kg

DRUGS (3)
  1. ULTOP [Concomitant]
     Dosage: 10 MG, UNK
     Route: 048
  2. CEFTRIAXONE SODIUM [Suspect]
     Indication: SPIROCHAETAL INFECTION
     Dosage: 1.5 G, UNK
     Route: 042
     Dates: start: 20070720, end: 20070802
  3. NAPROSYN [Concomitant]
     Dosage: 7 ML, UNK
     Route: 048

REACTIONS (4)
  - ABDOMINAL PAIN [None]
  - CHOLELITHIASIS [None]
  - HEPATIC ENZYME INCREASED [None]
  - BLOOD AMYLASE INCREASED [None]
